FAERS Safety Report 11218009 (Version 1)
Quarter: 2015Q2

REPORT INFORMATION
  Report Type: Spontaneous
  Country: ES (occurrence: ES)
  Receive Date: 20150625
  Receipt Date: 20150625
  Transmission Date: 20150821
  Serious: Yes (Hospitalization)
  Sender: FDA-Public Use
  Company Number: ES-EMD SERONO-E2B_80014667

PATIENT
  Age: 31 Year
  Sex: Female

DRUGS (3)
  1. ORGALUTRAN [Interacting]
     Active Substance: GANIRELIX ACETATE
     Indication: IN VITRO FERTILISATION
     Dosage: 1 INY SC
     Route: 058
     Dates: start: 20140522, end: 20140525
  2. OVITRELLE [Suspect]
     Active Substance: CHORIOGONADOTROPIN ALFA
     Indication: IN VITRO FERTILISATION
     Dosage: 250 MG SC
     Route: 058
     Dates: start: 20140525, end: 20140525
  3. MENOPUR [Interacting]
     Active Substance: FOLLICLE STIMULATING HORMONE BETA POLYPEPTIDE\LUTROPIN ALFA
     Indication: IN VITRO FERTILISATION
     Dosage: 2 INJ IM
     Route: 030
     Dates: start: 20140517, end: 20140523

REACTIONS (2)
  - Ovarian hyperstimulation syndrome [Recovered/Resolved]
  - Hepatitis acute [Recovered/Resolved]

NARRATIVE: CASE EVENT DATE: 20140608
